FAERS Safety Report 4331293-7 (Version None)
Quarter: 2004Q1

REPORT INFORMATION
  Report Type: 
  Country: None (occurrence: None)
  Receive Date: 20040331
  Receipt Date: 20040316
  Transmission Date: 20041129
  Serious: Yes (Hospitalization)
  Sender: FDA-Public Use
  Company Number: FR_031103139

PATIENT
  Age: 69 Year
  Sex: Male
  Weight: 108 kg

DRUGS (10)
  1. PEMETREXED (LY231514) [Suspect]
     Indication: PLEURAL MESOTHELIOMA MALIGNANT
     Dosage: 500 MG/M2/OTHER
     Route: 050
     Dates: start: 20030711, end: 20030919
  2. CISPLATIN [Concomitant]
  3. SOLUPRD (PREDNISOLONE SODIUM SULFOBENZOATE) [Concomitant]
  4. VITAMIN B-12 [Concomitant]
  5. FOLIC ACID [Concomitant]
  6. MOTILIUM [Concomitant]
  7. LASIX [Concomitant]
  8. BECLOMETHASONE DIPROPIONATE [Concomitant]
  9. POTASSIUM CHLORIDE [Concomitant]
  10. OXYGEN [Concomitant]

REACTIONS (10)
  - ANAEMIA [None]
  - DIABETES MELLITUS [None]
  - FATIGUE [None]
  - GENERAL PHYSICAL HEALTH DETERIORATION [None]
  - HYPERCAPNIC ENCEPHALOPATHY [None]
  - HYPERTHERMIA [None]
  - MUCOSAL INFLAMMATION [None]
  - PANCYTOPENIA [None]
  - PYREXIA [None]
  - RESPIRATORY FAILURE [None]
